FAERS Safety Report 7591833-1 (Version None)
Quarter: 2011Q3

REPORT INFORMATION
  Report Type: 
  Country: None (occurrence: None)
  Receive Date: 20110701
  Receipt Date: 20110701
  Transmission Date: 20111222
  Serious: Yes (Death)
  Sender: FDA-Public Use
  Company Number: None

PATIENT
  Sex: Male
  Weight: 2.9 kg

DRUGS (14)
  1. AMPICILLIN SODIUM [Concomitant]
  2. GENTAMICIN [Concomitant]
  3. LEXAPRO [Suspect]
     Indication: DEPRESSION
     Dosage: PO
     Route: 048
  4. LASIX [Concomitant]
  5. EPINEPHRINE [Concomitant]
  6. MILRINONE [Concomitant]
  7. TPN [Concomitant]
  8. CEFTOTAXIME [Concomitant]
  9. POTASSIUM CHLORIDE [Concomitant]
  10. DOBUTAMINE HCL [Concomitant]
  11. NA BICARB [Concomitant]
  12. MIDAZOLAM HCL [Concomitant]
  13. MORPHINE [Concomitant]
  14. DOPAMINE HCL [Concomitant]

REACTIONS (9)
  - CARDIO-RESPIRATORY ARREST NEONATAL [None]
  - VACUUM EXTRACTOR DELIVERY [None]
  - METABOLIC ACIDOSIS [None]
  - DEATH NEONATAL [None]
  - HYPOPERFUSION [None]
  - MATERNAL DRUGS AFFECTING FOETUS [None]
  - HEPATIC STEATOSIS [None]
  - CARDIAC DISORDER [None]
  - FOETAL HYPOKINESIA [None]
